FAERS Safety Report 10217051 (Version 2)
Quarter: 2014Q2

REPORT INFORMATION
  Report Type: Spontaneous
  Country: US (occurrence: US)
  Receive Date: 20140604
  Receipt Date: 20140604
  Transmission Date: 20141212
  Serious: No
  Sender: FDA-Public Use
  Company Number: US-ASTRAZENECA-2014SE12936

PATIENT
  Age: 62 Year
  Sex: Male

DRUGS (2)
  1. SYMBICORT [Suspect]
     Dosage: 320MCG 2 PUFFS, TWICE DAILY
     Route: 055
  2. SYMBICORT [Suspect]
     Dosage: 160MCG/4.5MCG, 2 PUFFS TWICE DAILY
     Route: 055

REACTIONS (2)
  - Dyspnoea [Recovered/Resolved]
  - Panic attack [Recovered/Resolved]
